FAERS Safety Report 4533554-5 (Version None)
Quarter: 2004Q4

REPORT INFORMATION
  Report Type: 
  Country: None (occurrence: None)
  Receive Date: 20041221
  Receipt Date: 20041215
  Transmission Date: 20050328
  Serious: Yes (Life-Threatening)
  Sender: FDA-Public Use
  Company Number: PHBS2004JP16897

PATIENT
  Age: 62 Year
  Sex: Male
  Weight: 46 kg

DRUGS (2)
  1. SANDOSTATIN [Suspect]
     Indication: INTESTINAL OBSTRUCTION
     Dosage: 300 UG/D
     Route: 058
     Dates: start: 20041029, end: 20041119
  2. TAXOL [Concomitant]
     Dosage: 120 MG/D
     Route: 042
     Dates: start: 20041105, end: 20041112

REACTIONS (4)
  - ABDOMINAL CAVITY DRAINAGE [None]
  - ABDOMINAL PAIN [None]
  - ASCITES [None]
  - PERITONITIS [None]
